FAERS Safety Report 6441982-6 (Version None)
Quarter: 2009Q4

REPORT INFORMATION
  Report Type: 
  Country: None (occurrence: None)
  Receive Date: 20091116
  Receipt Date: 20091110
  Transmission Date: 20100525
  Serious: Yes (Death)
  Sender: FDA-Public Use
  Company Number: AU-SANOFI-AVENTIS-200916749EU

PATIENT
  Age: 74 Year
  Sex: Male

DRUGS (1)
  1. RILUTEK [Suspect]
     Indication: DRUG USE FOR UNKNOWN INDICATION
     Dosage: DOSE: UNK
     Route: 048
     Dates: start: 20090722, end: 20091026

REACTIONS (1)
  - CHRONIC RESPIRATORY FAILURE [None]
